FAERS Safety Report 18077391 (Version 2)
Quarter: 2020Q3

REPORT INFORMATION
  Report Type: Spontaneous
  Country: US (occurrence: US)
  Receive Date: 20200727
  Receipt Date: 20200915
  Transmission Date: 20201103
  Serious: No
  Sender: FDA-Public Use
  Company Number: US-ALEXION-A202010511

PATIENT
  Age: 16 Year
  Sex: Female
  Weight: 71.7 kg

DRUGS (3)
  1. STRENSIQ [Suspect]
     Active Substance: ASFOTASE ALFA
     Dosage: 0.65 ML, SIX TIMES/WEEK
     Route: 065
     Dates: start: 20200717
  2. STRENSIQ [Suspect]
     Active Substance: ASFOTASE ALFA
     Indication: HYPOPHOSPHATASIA
     Dosage: UNK
     Route: 065
     Dates: start: 2019
  3. STRENSIQ [Suspect]
     Active Substance: ASFOTASE ALFA
     Dosage: 72 MG, SIX TIMES/WEEK
     Route: 058
     Dates: start: 20200717

REACTIONS (1)
  - Injection site pain [Recovered/Resolved]

NARRATIVE: CASE EVENT DATE: 20200717
